FAERS Safety Report 13472605 (Version 1)
Quarter: 2017Q2

REPORT INFORMATION
  Report Type: Spontaneous
  Country: US (occurrence: US)
  Receive Date: 20170423
  Receipt Date: 20170423
  Transmission Date: 20170830
  Serious: Yes (Other)
  Sender: FDA-Public Use
  Company Number: None

PATIENT
  Age: 73 Year
  Sex: Female
  Weight: 70 kg

DRUGS (1)
  1. PACLITAXEL. [Suspect]
     Active Substance: PACLITAXEL
     Route: 041

REACTIONS (4)
  - Hypertension [None]
  - Infusion related reaction [None]
  - Dizziness [None]
  - Burning sensation [None]

NARRATIVE: CASE EVENT DATE: 20170329
